FAERS Safety Report 11001792 (Version 1)
Quarter: 2015Q2

REPORT INFORMATION
  Report Type: Report from Study
  Country: US (occurrence: US)
  Receive Date: 20150408
  Receipt Date: 20150408
  Transmission Date: 20150821
  Serious: Yes (Hospitalization)
  Sender: FDA-Public Use
  Company Number: US-MALLINCKRODT-T201501121

PATIENT
  Age: 74 Year
  Sex: Female
  Weight: 63 kg

DRUGS (4)
  1. IMURAN [Concomitant]
     Active Substance: AZATHIOPRINE
     Dosage: 100 MG, QD
     Dates: start: 20140923
  2. H.P. ACTHAR [Suspect]
     Active Substance: CORTICOTROPIN
     Indication: DERMATOMYOSITIS
     Dosage: 1 ML, TWICE A WEEK
     Route: 058
     Dates: start: 20141230
  3. PREDNISONE. [Concomitant]
     Active Substance: PREDNISONE
     Dosage: 50 MG, QD
     Dates: start: 20141123
  4. CELLCEPT [Concomitant]
     Active Substance: MYCOPHENOLATE MOFETIL\MYCOPHENOLATE MOFETIL HYDROCHLORIDE
     Dosage: 3 G, QD
     Dates: start: 20141120

REACTIONS (1)
  - Musculoskeletal chest pain [Recovered/Resolved]

NARRATIVE: CASE EVENT DATE: 20150124
